FAERS Safety Report 6818050-4 (Version None)
Quarter: 2010Q3

REPORT INFORMATION
  Report Type: 
  Country: None (occurrence: None)
  Receive Date: 20100706
  Receipt Date: 20100618
  Transmission Date: 20110219
  Serious: Yes (Hospitalization)
  Sender: FDA-Public Use
  Company Number: A0843950A

PATIENT
  Age: 60 Year
  Sex: Male
  Weight: 127.3 kg

DRUGS (8)
  1. AVANDIA [Suspect]
     Indication: DIABETES MELLITUS
     Dosage: 8MG PER DAY
     Route: 048
     Dates: start: 20000101, end: 20080801
  2. ALTACE [Concomitant]
  3. TOPROL-XL [Concomitant]
  4. GEMFIBROZIL [Concomitant]
  5. LIPITOR [Concomitant]
  6. BUPROPION HCL [Concomitant]
  7. HYDROCHLOROTHIAZIDE [Concomitant]
  8. RANITIDINE [Concomitant]

REACTIONS (8)
  - ATRIAL FIBRILLATION [None]
  - ATRIAL FLUTTER [None]
  - CARDIAC DISORDER [None]
  - CARDIAC FAILURE CONGESTIVE [None]
  - CORONARY ARTERY DISEASE [None]
  - ISCHAEMIC CARDIOMYOPATHY [None]
  - PERICARDIAL EFFUSION [None]
  - THROMBOSIS [None]
